FAERS Safety Report 5737729-9 (Version None)
Quarter: 2008Q2

REPORT INFORMATION
  Report Type: 
  Country: None (occurrence: None)
  Receive Date: 20080514
  Receipt Date: 20080506
  Transmission Date: 20081010
  Serious: Yes (Other)
  Sender: FDA-Public Use
  Company Number: B0361132A

PATIENT
  Age: 30 Year
  Sex: Female

DRUGS (9)
  1. PAROXETINE HCL [Suspect]
     Dosage: 20MG PER DAY
     Route: 065
     Dates: start: 19990225
  2. FLUOXETINE [Concomitant]
     Route: 065
     Dates: start: 19920206, end: 20060421
  3. MIANSERIN [Concomitant]
     Route: 065
  4. DOTHIEPIN HYDROCHLORIDE [Concomitant]
     Route: 065
  5. ZOLPIDEM [Concomitant]
     Route: 065
  6. CITALOPRAM HYDROBROMIDE [Concomitant]
     Dates: start: 20060120, end: 20070101
  7. TRAZODONE HCL [Concomitant]
     Dates: start: 20050826
  8. PYRIDOXINE [Concomitant]
     Dates: start: 20060120
  9. NICOTINE [Concomitant]
     Dates: start: 20080201

REACTIONS (13)
  - ADVERSE DRUG REACTION [None]
  - ANGER [None]
  - DEPRESSION [None]
  - DRUG WITHDRAWAL SYNDROME [None]
  - HYPERHIDROSIS [None]
  - INTENTIONAL SELF-INJURY [None]
  - MALAISE [None]
  - MOOD SWINGS [None]
  - PANIC ATTACK [None]
  - PARAESTHESIA [None]
  - POOR QUALITY SLEEP [None]
  - SUICIDAL IDEATION [None]
  - TREMOR [None]
